FAERS Safety Report 5294369-6 (Version None)
Quarter: 2007Q2

REPORT INFORMATION
  Report Type: 
  Country: None (occurrence: None)
  Receive Date: 20070409
  Receipt Date: 20070409
  Transmission Date: 20071010
  Serious: Yes (Disabling)
  Sender: FDA-Public Use
  Company Number: None

PATIENT
  Sex: Male
  Weight: 81.6475 kg

DRUGS (4)
  1. WELLBUTRIN XL [Suspect]
     Indication: DEPRESSION
     Dosage: 100 MG
  2. WELLBUTRIN XL [Suspect]
     Dosage: 100 MG
  3. METHYLPHENIDATE HCL [Concomitant]
  4. FLUOXETINE [Concomitant]

REACTIONS (1)
  - RETINAL TEAR [None]
